FAERS Safety Report 6424488-X (Version None)
Quarter: 2009Q4

REPORT INFORMATION
  Report Type: 
  Country: None (occurrence: None)
  Receive Date: 20091103
  Receipt Date: 20091023
  Transmission Date: 20100525
  Serious: Yes (Hospitalization)
  Sender: FDA-Public Use
  Company Number: US-ROCHE-657839

PATIENT
  Age: 67 Year
  Sex: Female

DRUGS (6)
  1. BONIVA [Suspect]
     Indication: OSTEOPOROSIS
     Route: 042
     Dates: start: 20090701
  2. CALCIUM [Concomitant]
  3. VITAMINE D [Concomitant]
     Dosage: TDD: 3000 IU
  4. FLAXSEED [Concomitant]
  5. LISINOPRIL [Concomitant]
     Indication: HYPERTENSION
     Route: 048
  6. SIMVASTIN [Concomitant]
     Route: 048

REACTIONS (2)
  - BONE PAIN [None]
  - CHOLELITHIASIS [None]
